FAERS Safety Report 14433333 (Version 1)
Quarter: 2018Q1

REPORT INFORMATION
  Report Type: Spontaneous
  Country: US (occurrence: US)
  Receive Date: 20180124
  Receipt Date: 20180124
  Transmission Date: 20180509
  Serious: Yes (Hospitalization)
  Sender: FDA-Public Use
  Company Number: US-PIRAMAL CRITICAL CARE LIMITED-2017-PEL-003130

PATIENT

DRUGS (3)
  1. GABLOFEN [Suspect]
     Active Substance: BACLOFEN
     Indication: MUSCLE SPASTICITY
  2. LIORESAL [Concomitant]
     Active Substance: BACLOFEN
     Dosage: 125.2 ?G, QD (1000 MCG/ML)
     Route: 037
  3. GABLOFEN [Suspect]
     Active Substance: BACLOFEN
     Indication: CEREBRAL PALSY
     Dosage: 929 ?G, QD
     Route: 037

REACTIONS (1)
  - Implant site infection [Recovered/Resolved]

NARRATIVE: CASE EVENT DATE: 20170807
